FAERS Safety Report 8017951-1 (Version None)
Quarter: 2012Q1

REPORT INFORMATION
  Report Type: 
  Country: None (occurrence: None)
  Receive Date: 20120103
  Receipt Date: 20111227
  Transmission Date: 20120608
  Serious: Yes (Death, Life-Threatening, Disabling)
  Sender: FDA-Public Use
  Company Number: PL-JNJFOC-20111209525

PATIENT
  Sex: Male
  Weight: 75 kg

DRUGS (3)
  1. ABIRATERONE ACETATE [Suspect]
     Indication: PROSTATE CANCER METASTATIC
     Route: 048
     Dates: start: 20110629, end: 20111205
  2. PREDNISONE TAB [Suspect]
     Indication: PROSTATE CANCER METASTATIC
     Route: 065
     Dates: start: 20110629, end: 20111205
  3. ABIRATERONE ACETATE [Suspect]
     Route: 048

REACTIONS (2)
  - DECREASED APPETITE [None]
  - DEHYDRATION [None]
